FAERS Safety Report 6491811-X (Version None)
Quarter: 2009Q4

REPORT INFORMATION
  Report Type: 
  Country: None (occurrence: None)
  Receive Date: 20091210
  Receipt Date: 20091201
  Transmission Date: 20100525
  Serious: Yes (Hospitalization)
  Sender: FDA-Public Use
  Company Number: 2009US004191

PATIENT
  Age: 83 Year
  Sex: Female
  Weight: 73 kg

DRUGS (2)
  1. AMEVIVE [Suspect]
     Indication: PSORIASIS
     Dosage: 15 MG, WEELY, INTRAMUSCULAR ; 15 MG, WEEKLY, INTRAMUSCULAR
     Route: 030
     Dates: start: 20050623, end: 20050819
  2. AMEVIVE [Suspect]
     Indication: PSORIASIS
     Dosage: 15 MG, WEELY, INTRAMUSCULAR ; 15 MG, WEEKLY, INTRAMUSCULAR
     Route: 030
     Dates: start: 20060214, end: 20060706

REACTIONS (1)
  - CEREBROVASCULAR ACCIDENT [None]
